FAERS Safety Report 14894561 (Version 5)
Quarter: 2018Q3

REPORT INFORMATION
  Report Type: Spontaneous
  Country: US (occurrence: US)
  Receive Date: 20180515
  Receipt Date: 20180917
  Transmission Date: 20181010
  Serious: No
  Sender: FDA-Public Use
  Company Number: US-IPSEN BIOPHARMACEUTICALS, INC.-2018-06573

PATIENT
  Age: 67 Year
  Sex: Male

DRUGS (9)
  1. LIDOCAINE PATCH [Concomitant]
     Active Substance: LIDOCAINE
  2. OCTREOTIDE. [Concomitant]
     Active Substance: OCTREOTIDE
  3. CARBOPLATIN. [Concomitant]
     Active Substance: CARBOPLATIN
  4. NEULASTA [Concomitant]
     Active Substance: PEGFILGRASTIM
  5. NORCO [Concomitant]
     Active Substance: ACETAMINOPHEN\HYDROCODONE BITARTRATE
  6. XERMELO [Suspect]
     Active Substance: TELOTRISTAT ETHYL
     Indication: CARCINOID SYNDROME
     Route: 048
     Dates: start: 20180310
  7. MORPHINE [Concomitant]
     Active Substance: MORPHINE
     Dosage: AT BEDTIME
  8. ETOPOSIDE. [Concomitant]
     Active Substance: ETOPOSIDE
  9. LANREOTIDE AUTOGEL [Suspect]
     Active Substance: LANREOTIDE
     Indication: PRODUCT USED FOR UNKNOWN INDICATION
     Dosage: NOT REPORTED
     Route: 065
     Dates: start: 20180321

REACTIONS (3)
  - Dehydration [Recovered/Resolved]
  - Weight decreased [Recovered/Resolved]
  - Diarrhoea [Recovering/Resolving]

NARRATIVE: CASE EVENT DATE: 201803
